FAERS Safety Report 7457651-X (Version None)
Quarter: 2011Q2

REPORT INFORMATION
  Report Type: 
  Country: None (occurrence: None)
  Receive Date: 20110504
  Receipt Date: 20110429
  Transmission Date: 20111010
  Serious: Yes (Death, Hospitalization)
  Sender: FDA-Public Use
  Company Number: CA-B.I. PHARMACEUTICALS,INC./RIDGEFIELD-2010-BP-14659BP

PATIENT
  Sex: Male
  Weight: 96 kg

DRUGS (15)
  1. ACCUPRIL [Concomitant]
     Indication: HYPERTENSION
     Dosage: 40 MG
     Route: 048
     Dates: start: 20080103
  2. METOPROLOL SUCCINATE [Concomitant]
     Indication: HYPERTENSION
  3. HYDROCHLOROTHIAZIDE [Concomitant]
     Indication: HYPERTENSION
     Dosage: 25 MG
     Route: 048
     Dates: start: 20040107
  4. VITALIX [Concomitant]
     Indication: ROUTINE HEALTH MAINTENANCE
     Route: 048
  5. METOPROLOL SUCCINATE [Concomitant]
     Indication: ATRIAL FIBRILLATION
     Dosage: 50 MG
     Route: 048
     Dates: start: 20060311
  6. HUMALOG MIX 50 [Concomitant]
     Indication: TYPE 2 DIABETES MELLITUS
     Dosage: 50 U
     Dates: start: 20050208
  7. VITAMIN D [Concomitant]
     Indication: ROUTINE HEALTH MAINTENANCE
     Dosage: 1000 U
     Route: 048
  8. DABIGATRAN [Suspect]
     Indication: ATRIAL FIBRILLATION
  9. NORVASC [Concomitant]
     Indication: HYPERTENSION
     Dosage: 10 MG
     Route: 048
     Dates: start: 20060810
  10. APO-FEND SUPER [Concomitant]
     Indication: DYSLIPIDAEMIA
     Dosage: 160 MG
     Route: 048
  11. DABIGATRAN [Suspect]
     Indication: CEREBROVASCULAR ACCIDENT PROPHYLAXIS
     Route: 048
     Dates: start: 20090107, end: 20101216
  12. ASPIRIN [Concomitant]
     Indication: CEREBROVASCULAR ACCIDENT PROPHYLAXIS
     Dosage: 81 MG
     Route: 048
     Dates: start: 20040101, end: 20101211
  13. FOLIC ACID [Concomitant]
     Indication: ROUTINE HEALTH MAINTENANCE
     Dosage: 1 MG
     Route: 048
     Dates: start: 20050115
  14. HUMALOG [Concomitant]
     Indication: TYPE 2 DIABETES MELLITUS
     Dosage: 25 U
     Dates: start: 20050208
  15. EZETIMIBE [Concomitant]
     Indication: DYSLIPIDAEMIA
     Dosage: 10 MG
     Route: 048
     Dates: start: 20080103

REACTIONS (3)
  - DEATH [None]
  - DYSPNOEA [None]
  - GASTROINTESTINAL HAEMORRHAGE [None]
